FAERS Safety Report 6249089-8 (Version None)
Quarter: 2009Q2

REPORT INFORMATION
  Report Type: 
  Country: None (occurrence: None)
  Receive Date: 20090624
  Receipt Date: 20090624
  Transmission Date: 20091009
  Serious: Yes (Other)
  Sender: FDA-Public Use
  Company Number: None

PATIENT
  Age: 59 Year
  Sex: Male
  Weight: 69.4003 kg

DRUGS (1)
  1. DORYX [Suspect]
     Indication: RASH
     Dosage: 150  1  PO
     Route: 048
     Dates: start: 20090615, end: 20090619

REACTIONS (3)
  - COLD SWEAT [None]
  - DIZZINESS [None]
  - PRODUCT LABEL ISSUE [None]
